FAERS Safety Report 7725293-4 (Version None)
Quarter: 2011Q3

REPORT INFORMATION
  Report Type: 
  Country: None (occurrence: None)
  Receive Date: 20110902
  Receipt Date: 20110826
  Transmission Date: 20111222
  Serious: No
  Sender: FDA-Public Use
  Company Number: US-BIOGENIDEC-2011BI032527

PATIENT
  Sex: Female

DRUGS (2)
  1. AVONEX [Suspect]
     Indication: MULTIPLE SCLEROSIS
     Route: 030
     Dates: start: 20100330, end: 20101001
  2. AVONEX [Suspect]
     Route: 030
     Dates: start: 20110427

REACTIONS (8)
  - FLUID RETENTION [None]
  - PAIN [None]
  - URINARY TRACT INFECTION [None]
  - PAIN IN EXTREMITY [None]
  - ANAEMIA [None]
  - URINARY INCONTINENCE [None]
  - URINE ODOUR ABNORMAL [None]
  - WEIGHT INCREASED [None]
